FAERS Safety Report 5452502-7 (Version None)
Quarter: 2007Q3

REPORT INFORMATION
  Report Type: 
  Country: None (occurrence: None)
  Receive Date: 20070914
  Receipt Date: 20070905
  Transmission Date: 20080115
  Serious: Yes (Hospitalization)
  Sender: FDA-Public Use
  Company Number: US-KINGPHARMUSA00001-K200701138

PATIENT

DRUGS (10)
  1. ALTACE [Suspect]
     Indication: CARDIAC FAILURE
     Dosage: 5 MG, QD
     Route: 048
     Dates: end: 20070608
  2. METOPROLOL SUCCINATE [Concomitant]
  3. CIPRALEX /01588501/ [Concomitant]
  4. RANITIDIN ALPHARMA [Concomitant]
  5. SIMVASTATIN [Concomitant]
  6. PROGYNON /00045402/ [Concomitant]
  7. BURINEX [Concomitant]
  8. SOBRIL [Concomitant]
  9. TROMBYL [Concomitant]
  10. AMILORIDE HYDROCHLORIDE [Concomitant]

REACTIONS (3)
  - DIARRHOEA [None]
  - FALL [None]
  - NEPHROPATHY TOXIC [None]
